FAERS Safety Report 11462884 (Version 1)
Quarter: 2015Q3

REPORT INFORMATION
  Report Type: Spontaneous
  Country: US (occurrence: US)
  Receive Date: 20150831
  Receipt Date: 20150831
  Transmission Date: 20151125
  Serious: Yes (Other)
  Sender: FDA-Public Use
  Company Number: US-ELI_LILLY_AND_COMPANY-US201101000431

PATIENT
  Age: 52 Year
  Sex: Male

DRUGS (6)
  1. WELLBUTRIN [Concomitant]
     Active Substance: BUPROPION HYDROCHLORIDE
     Dosage: 300 MG, UNKNOWN
     Dates: end: 20101216
  2. FINASTERIDE. [Concomitant]
     Active Substance: FINASTERIDE
     Indication: BENIGN PROSTATIC HYPERPLASIA
  3. CYMBALTA [Suspect]
     Active Substance: DULOXETINE HYDROCHLORIDE
     Indication: MAJOR DEPRESSION
     Dosage: 30 MG, DAILY (1/D)
     Dates: start: 20101207, end: 20101215
  4. INSULIN [Concomitant]
     Active Substance: INSULIN NOS
  5. FISH OIL [Concomitant]
     Active Substance: FISH OIL
  6. CYMBALTA [Suspect]
     Active Substance: DULOXETINE HYDROCHLORIDE
     Dosage: 60 MG, DAILY (1/D)
     Dates: start: 20101216, end: 20110102

REACTIONS (6)
  - Irritability [Unknown]
  - Depression [Recovering/Resolving]
  - Bipolar disorder [Unknown]
  - Mood altered [Recovering/Resolving]
  - Suicidal ideation [Recovering/Resolving]
  - Feeling of despair [Unknown]
